FAERS Safety Report 8620938-9 (Version None)
Quarter: 2012Q3

REPORT INFORMATION
  Report Type: 
  Country: None (occurrence: None)
  Receive Date: 20120824
  Receipt Date: 20120813
  Transmission Date: 20120928
  Serious: Yes (Other)
  Sender: FDA-Public Use
  Company Number: US-PFIZER INC-2012079630

PATIENT
  Sex: Female

DRUGS (3)
  1. ERYTHROMYCIN [Interacting]
     Indication: GASTROINTESTINAL INFECTION
     Dosage: UNK
     Route: 065
  2. AZITHROMYCIN [Suspect]
     Indication: PRODUCT USED FOR UNKNOWN INDICATION
     Dosage: UNK
     Route: 065
  3. CITALOPRAM [Interacting]
     Indication: PRODUCT USED FOR UNKNOWN INDICATION
     Dosage: UNK
     Route: 065

REACTIONS (5)
  - DRUG INEFFECTIVE [None]
  - HYPOXIA [None]
  - HEART RATE INCREASED [None]
  - DRUG INTERACTION [None]
  - DEPRESSION [None]
